FAERS Safety Report 9036945 (Version 1)
Quarter: 2013Q1

REPORT INFORMATION
  Report Type: Spontaneous
  Country: US (occurrence: None)
  Receive Date: 20130118
  Receipt Date: 20130118
  Transmission Date: 20140127
  Serious: Yes (Other)
  Sender: FDA-Public Use
  Company Number: None

PATIENT
  Age: 12 Month
  Sex: Male
  Weight: 9.3 kg

DRUGS (2)
  1. ROTATEQ [Suspect]
     Indication: ROTAVIRUS INFECTION
     Route: 048
     Dates: start: 20120227, end: 20120705
  2. ROTATEQ [Suspect]
     Indication: PROPHYLAXIS
     Route: 048
     Dates: start: 20120227, end: 20120705

REACTIONS (1)
  - Diarrhoea [None]
